FAERS Safety Report 9945219 (Version 1)
Quarter: 2014Q1

REPORT INFORMATION
  Report Type: Report from Study
  Country: US (occurrence: US)
  Receive Date: 20140303
  Receipt Date: 20140303
  Transmission Date: 20141002
  Serious: No
  Sender: FDA-Public Use
  Company Number: US-ABBVIE-13P-163-1050663-00

PATIENT
  Age: 58 Year
  Sex: Male

DRUGS (11)
  1. HUMIRA [Suspect]
     Indication: CROHN^S DISEASE
     Dates: start: 20110121, end: 201210
  2. LOTREL [Concomitant]
     Indication: BLOOD PRESSURE
     Dosage: 10/20MG, 1 DAILY
  3. PREVACID [Concomitant]
     Indication: GASTROOESOPHAGEAL REFLUX DISEASE
  4. CRESTOR [Concomitant]
     Indication: BLOOD CHOLESTEROL
     Dosage: AT HOUR OF SLEEP
  5. NIASPAN [Concomitant]
     Indication: BLOOD CHOLESTEROL
     Dosage: AT HOUR OF SLEEP
  6. TRICOR [Concomitant]
     Indication: BLOOD CHOLESTEROL
     Dosage: DAILY
  7. IRON [Concomitant]
     Indication: ANAEMIA
     Dosage: DAILY
  8. ZYRTEC [Concomitant]
     Indication: HYPERSENSITIVITY
     Dosage: DAILY
  9. ALLERGY SHOT [Concomitant]
     Indication: PRODUCT USED FOR UNKNOWN INDICATION
     Dosage: WEEKLY
  10. ASTELIN [Concomitant]
     Indication: SINUS DISORDER
     Dosage: 2 SPRAYS, EACH NOSTRIL, TWICE DAILY
  11. ASPIRIN [Concomitant]
     Indication: PRODUCT USED FOR UNKNOWN INDICATION

REACTIONS (1)
  - Sinusitis [Recovered/Resolved]
